FAERS Safety Report 12695917 (Version 2)
Quarter: 2017Q1

REPORT INFORMATION
  Report Type: Spontaneous
  Country: TR (occurrence: TR)
  Receive Date: 20160829
  Receipt Date: 20170109
  Transmission Date: 20170428
  Serious: Yes (Hospitalization)
  Sender: FDA-Public Use
  Company Number: TR-BIOMARINAP-TR-2016-110834

PATIENT
  Age: 4 Year
  Sex: Male
  Weight: 14 kg

DRUGS (4)
  1. AVIL                               /00085102/ [Concomitant]
     Indication: PREMEDICATION
     Dosage: 1 MG/KG, SINGLE
     Route: 042
  2. DECORT [Concomitant]
     Indication: PREMEDICATION
     Dosage: 0.1 MG/KG, SINGLE
     Route: 042
  3. VIMIZIM [Suspect]
     Active Substance: ELOSULFASE ALFA
     Indication: MUCOPOLYSACCHARIDOSIS IV
     Dosage: 2 MG/KG, QW
     Route: 042
     Dates: start: 20160603
  4. ZOFRAN [Concomitant]
     Active Substance: ONDANSETRON HYDROCHLORIDE
     Indication: PREMEDICATION
     Dosage: 0.2 MG/KG, SINGLE
     Route: 042

REACTIONS (3)
  - Feeling abnormal [Recovered/Resolved]
  - Vomiting [Recovered/Resolved]
  - Nausea [Recovered/Resolved]

NARRATIVE: CASE EVENT DATE: 20160803
